FAERS Safety Report 6842352-9 (Version None)
Quarter: 2010Q3

REPORT INFORMATION
  Report Type: 
  Country: None (occurrence: None)
  Receive Date: 20100709
  Receipt Date: 20100701
  Transmission Date: 20110219
  Serious: Yes (Other)
  Sender: FDA-Public Use
  Company Number: 014886

PATIENT
  Sex: Female
  Weight: 3.2 kg

DRUGS (1)
  1. KEPPRA [Suspect]
     Indication: EPILEPSY
     Dosage: 1500 MG BID, 1500X2 TRANSPLACENTAL, (750 MG BID TRANSPLACENTAL), (750 MG BID TRANSMAMMARY)
     Route: 064

REACTIONS (4)
  - DRUG EXPOSURE VIA BREAST MILK [None]
  - HAEMANGIOMA [None]
  - MATERNAL DRUGS AFFECTING FOETUS [None]
  - PREMATURE BABY [None]
